FAERS Safety Report 10729062 (Version 1)
Quarter: 2015Q1

REPORT INFORMATION
  Report Type: Spontaneous
  Country: US (occurrence: None)
  Receive Date: 20150120
  Receipt Date: 20150120
  Transmission Date: 20150721
  Serious: Yes (Life-Threatening)
  Sender: FDA-Public Use
  Company Number: None

PATIENT
  Age: 64 Year
  Sex: Female
  Weight: 89.36 kg

DRUGS (16)
  1. BENAZEPRIL [Concomitant]
     Active Substance: BENAZEPRIL\BENAZEPRIL HYDROCHLORIDE
  2. TRAMADOL [Concomitant]
     Active Substance: TRAMADOL
  3. TAMIFLU [Suspect]
     Active Substance: OSELTAMIVIR PHOSPHATE
     Indication: INFLUENZA
     Dosage: 1 PILL
     Dates: start: 20150116, end: 20150118
  4. SYNTHROID [Concomitant]
     Active Substance: LEVOTHYROXINE SODIUM
  5. LIPITOR [Concomitant]
     Active Substance: ATORVASTATIN CALCIUM
  6. LEVOFLOXACIN. [Concomitant]
     Active Substance: LEVOFLOXACIN
  7. PLAVIX [Concomitant]
     Active Substance: CLOPIDOGREL BISULFATE
  8. VALTREX [Concomitant]
     Active Substance: VALACYCLOVIR HYDROCHLORIDE
  9. MUCINEX [Concomitant]
     Active Substance: GUAIFENESIN
  10. PROBIOTIC [Concomitant]
     Active Substance: PROBIOTICS NOS
  11. FLUCONAZOLE. [Concomitant]
     Active Substance: FLUCONAZOLE
  12. MUPIROCIN. [Concomitant]
     Active Substance: MUPIROCIN
  13. HCTZ [Concomitant]
     Active Substance: HYDROCHLOROTHIAZIDE
  14. TRIAMCINOLONE [Concomitant]
     Active Substance: TRIAMCINOLONE
  15. ASA [Concomitant]
     Active Substance: ASPIRIN
  16. LOMOTIL [Concomitant]
     Active Substance: ATROPINE SULFATE\DIPHENOXYLATE HYDROCHLORIDE

REACTIONS (8)
  - Rash [None]
  - Peripheral swelling [None]
  - Stress [None]
  - Paraesthesia oral [None]
  - Cheilitis [None]
  - Ocular hyperaemia [None]
  - Fatigue [None]
  - Pruritus [None]

NARRATIVE: CASE EVENT DATE: 20150118
